FAERS Safety Report 11847068 (Version 11)
Quarter: 2017Q3

REPORT INFORMATION
  Report Type: Report from Study
  Country: US (occurrence: US)
  Receive Date: 20151217
  Receipt Date: 20170721
  Transmission Date: 20171127
  Serious: Yes (Hospitalization, Other)
  Sender: FDA-Public Use
  Company Number: US-JNJFOC-20151205758

PATIENT
  Age: 75 Year
  Sex: Male
  Weight: 107 kg

DRUGS (27)
  1. IMBRUVICA [Suspect]
     Active Substance: IBRUTINIB
     Indication: NEOPLASM MALIGNANT
     Route: 048
     Dates: start: 20150514, end: 201604
  2. IMBRUVICA [Suspect]
     Active Substance: IBRUTINIB
     Indication: WALDENSTROM^S MACROGLOBULINAEMIA
     Route: 048
     Dates: start: 201604
  3. CALCIUM [Concomitant]
     Active Substance: CALCIUM
  4. IMBRUVICA [Suspect]
     Active Substance: IBRUTINIB
     Indication: NEOPLASM MALIGNANT
     Route: 048
     Dates: start: 201604
  5. IMBRUVICA [Suspect]
     Active Substance: IBRUTINIB
     Indication: NEOPLASM MALIGNANT
     Route: 048
     Dates: start: 20151112
  6. IMBRUVICA [Suspect]
     Active Substance: IBRUTINIB
     Indication: WALDENSTROM^S MACROGLOBULINAEMIA
     Route: 048
     Dates: start: 20160414
  7. DOXYCYCLINE. [Concomitant]
     Active Substance: DOXYCYCLINE
  8. ASA [Concomitant]
     Active Substance: ASPIRIN
  9. PREDNISONE. [Concomitant]
     Active Substance: PREDNISONE
  10. IMBRUVICA [Suspect]
     Active Substance: IBRUTINIB
     Indication: NEOPLASM MALIGNANT
     Route: 048
     Dates: start: 20150512
  11. AMIODARONE [Concomitant]
     Active Substance: AMIODARONE
  12. LEVOTHYROXINE. [Concomitant]
     Active Substance: LEVOTHYROXINE
  13. ZITHROMAX [Concomitant]
     Active Substance: AZITHROMYCIN DIHYDRATE
  14. LISINOPRIL. [Concomitant]
     Active Substance: LISINOPRIL
  15. METOPROLOL SUCCINATE. [Concomitant]
     Active Substance: METOPROLOL SUCCINATE
  16. WARFARIN [Concomitant]
     Active Substance: WARFARIN
  17. IMBRUVICA [Suspect]
     Active Substance: IBRUTINIB
     Indication: WALDENSTROM^S MACROGLOBULINAEMIA
     Route: 048
     Dates: start: 20151112
  18. IMBRUVICA [Suspect]
     Active Substance: IBRUTINIB
     Indication: WALDENSTROM^S MACROGLOBULINAEMIA
     Route: 048
     Dates: start: 20150512
  19. ZOCOR [Concomitant]
     Active Substance: SIMVASTATIN
  20. PROTONIX [Concomitant]
     Active Substance: PANTOPRAZOLE SODIUM
  21. MAGNESIUM [Concomitant]
     Active Substance: MAGNESIUM
  22. IMBRUVICA [Suspect]
     Active Substance: IBRUTINIB
     Indication: NEOPLASM MALIGNANT
     Route: 048
     Dates: start: 20160414
  23. ATORVASTATIN CALCIUM. [Concomitant]
     Active Substance: ATORVASTATIN CALCIUM
  24. TYLENOL [Concomitant]
     Active Substance: ACETAMINOPHEN
  25. IMBRUVICA [Suspect]
     Active Substance: IBRUTINIB
     Indication: WALDENSTROM^S MACROGLOBULINAEMIA
     Route: 048
     Dates: start: 20150514, end: 201604
  26. BENZONATATE. [Concomitant]
     Active Substance: BENZONATATE
  27. SUCRALFATE. [Concomitant]
     Active Substance: SUCRALFATE

REACTIONS (25)
  - Blood count abnormal [Unknown]
  - Blood pressure abnormal [Unknown]
  - Dehydration [Unknown]
  - Rash [Unknown]
  - Joint swelling [Unknown]
  - Bronchitis [Unknown]
  - Pneumonia [Unknown]
  - Post procedural contusion [Unknown]
  - Chest pain [Unknown]
  - Hypersensitivity [Unknown]
  - Hip arthroplasty [Unknown]
  - Breath sounds abnormal [Unknown]
  - Presyncope [Recovered/Resolved]
  - Dry skin [Not Recovered/Not Resolved]
  - Hypertension [Recovered/Resolved]
  - Incorrect dose administered [Unknown]
  - Pruritus [Not Recovered/Not Resolved]
  - Tongue ulceration [Unknown]
  - Asthenia [Unknown]
  - Off label use [Unknown]
  - Cough [Not Recovered/Not Resolved]
  - Skin lesion [Not Recovered/Not Resolved]
  - Muscle spasms [Unknown]
  - Headache [Unknown]
  - Malaise [Unknown]

NARRATIVE: CASE EVENT DATE: 2015
